FAERS Safety Report 4918695-2 (Version None)
Quarter: 2006Q1

REPORT INFORMATION
  Report Type: 
  Country: None (occurrence: None)
  Receive Date: 20060216
  Receipt Date: 20060213
  Transmission Date: 20060701
  Serious: Yes (Death)
  Sender: FDA-Public Use
  Company Number: HQWYE791614FEB06

PATIENT
  Age: 37 Year
  Sex: Male
  Weight: 70.1 kg

DRUGS (6)
  1. EFFEXOR [Suspect]
  2. DIAZEPAM [Concomitant]
  3. METHADONE HCL [Suspect]
  4. ANGIOMAX [Concomitant]
  5. ALBUTEROL [Concomitant]
  6. ASPIRIN [Concomitant]

REACTIONS (9)
  - APNOEA [None]
  - ARTERIOSCLEROSIS CORONARY ARTERY [None]
  - CARDIAC ARREST [None]
  - DRUG TOXICITY [None]
  - GRANULOMA [None]
  - LOSS OF CONSCIOUSNESS [None]
  - LUNG DISORDER [None]
  - NAUSEA [None]
  - VOMITING [None]
